FAERS Safety Report 14636213 (Version 1)
Quarter: 2018Q1

REPORT INFORMATION
  Report Type: Not Available
  Country: US (occurrence: US)
  Receive Date: 20180314
  Receipt Date: 20180314
  Transmission Date: 20180509
  Serious: No
  Sender: FDA-Public Use
  Company Number: US-FOUNDATIONCONSUMERHC-2018-US-001569

PATIENT
  Age: 40 Year
  Sex: Female
  Weight: 68.04 kg

DRUGS (2)
  1. PLAN B ONE-STEP [Suspect]
     Active Substance: LEVONORGESTREL
     Dosage: 1 DOSE X 1
     Route: 048
     Dates: start: 20180108, end: 20180108
  2. PLAN B ONE-STEP [Suspect]
     Active Substance: LEVONORGESTREL
     Dosage: 1 DOSE X 1
     Route: 048
     Dates: start: 20180117, end: 20180117

REACTIONS (6)
  - Breast tenderness [Recovering/Resolving]
  - Nausea [Recovering/Resolving]
  - Oligomenorrhoea [Recovered/Resolved]
  - Menstruation delayed [Recovered/Resolved]
  - Abdominal distension [Recovering/Resolving]
  - Abdominal pain [Recovering/Resolving]

NARRATIVE: CASE EVENT DATE: 20180114
